FAERS Safety Report 16359951 (Version 1)
Quarter: 2019Q2

REPORT INFORMATION
  Report Type: Spontaneous
  Country: US (occurrence: US)
  Receive Date: 20190528
  Receipt Date: 20190528
  Transmission Date: 20190711
  Serious: Yes (Other)
  Sender: FDA-Public Use
  Company Number: US-HETERO CORPORATE-HET2019US00725

PATIENT

DRUGS (3)
  1. LOSARTAN. [Suspect]
     Active Substance: LOSARTAN
     Indication: HYPERTENSION
     Dosage: 25 MG
     Route: 065
  2. LOSARTAN. [Suspect]
     Active Substance: LOSARTAN
     Dosage: 100 MG
     Route: 065
  3. LOSARTAN. [Suspect]
     Active Substance: LOSARTAN
     Dosage: 50 MG
     Route: 065

REACTIONS (1)
  - Feeling abnormal [Unknown]
